FAERS Safety Report 10442113 (Version 1)
Quarter: 2014Q3

REPORT INFORMATION
  Report Type: Spontaneous
  Country: US (occurrence: None)
  Receive Date: 20140815
  Receipt Date: 20140815
  Transmission Date: 20150326
  Serious: No
  Sender: FDA-Public Use
  Company Number: A-NJ2014-97839

PATIENT
  Age: 56 Year
  Sex: Female

DRUGS (3)
  1. SILDENAFIL (SILDENAFIL) [Concomitant]
     Active Substance: SILDENAFIL
  2. TYVASO (TREPROSTINIL SODIUM) [Concomitant]
  3. OPSUMIT [Suspect]
     Active Substance: MACITENTAN
     Indication: PULMONARY ARTERIAL HYPERTENSION
     Dates: start: 20140404

REACTIONS (4)
  - Fluid retention [None]
  - Oedema peripheral [None]
  - Local swelling [None]
  - Abdominal distension [None]
